FAERS Safety Report 6376479-5 (Version None)
Quarter: 2009Q3

REPORT INFORMATION
  Report Type: 
  Country: None (occurrence: None)
  Receive Date: 20090921
  Receipt Date: 20090909
  Transmission Date: 20100115
  Serious: Yes (Hospitalization, Other)
  Sender: FDA-Public Use
  Company Number: ADR24732009

PATIENT
  Age: 16 Year
  Sex: Female

DRUGS (5)
  1. LAMOTRIGINE [Suspect]
     Indication: CONVULSION
     Dosage: 75 MG - 2/1 DAY, ORAL
     Route: 048
  2. AUGMENTIN [Concomitant]
  3. PHENOXYMETHYLPENICILLIN [Concomitant]
  4. PHENYTOIN [Concomitant]
  5. FLUCONAZOLE [Concomitant]

REACTIONS (16)
  - ABNORMAL FAECES [None]
  - AUTISM [None]
  - CANDIDIASIS [None]
  - CONVULSION [None]
  - DIARRHOEA [None]
  - DISBACTERIOSIS [None]
  - DRUG INEFFECTIVE [None]
  - EPISTAXIS [None]
  - LACTOSE INTOLERANCE [None]
  - MALAISE [None]
  - MALNUTRITION [None]
  - RASH GENERALISED [None]
  - UPPER LIMB FRACTURE [None]
  - UPPER RESPIRATORY TRACT INFECTION [None]
  - URINARY RETENTION [None]
  - VOMITING PROJECTILE [None]
